FAERS Safety Report 5627134-8 (Version None)
Quarter: 2008Q1

REPORT INFORMATION
  Report Type: 
  Country: None (occurrence: None)
  Receive Date: 20080212
  Receipt Date: 20080212
  Transmission Date: 20080703
  Serious: Yes (Other)
  Sender: FDA-Public Use
  Company Number: None

PATIENT
  Age: 43 Year
  Sex: Male
  Weight: 77.1115 kg

DRUGS (1)
  1. ANDROGEL [Suspect]
     Indication: HYPOGONADISM
     Dosage: WAS UP TO BETWEEN 5-7 5MG DAILY TRANSDERMAL MID 90''S TO NOW
     Route: 062

REACTIONS (4)
  - BLOOD TESTOSTERONE DECREASED [None]
  - BLOOD TESTOSTERONE FREE DECREASED [None]
  - BLOOD TESTOSTERONE FREE INCREASED [None]
  - DIHYDROTESTOSTERONE INCREASED [None]
